FAERS Safety Report 8515479-3 (Version None)
Quarter: 2012Q3

REPORT INFORMATION
  Report Type: 
  Country: None (occurrence: None)
  Receive Date: 20120717
  Receipt Date: 20120709
  Transmission Date: 20120928
  Serious: Yes (Death, Hospitalization)
  Sender: FDA-Public Use
  Company Number: JP-BAYER-2011-016612

PATIENT
  Age: 66 Year
  Sex: Male
  Weight: 70 kg

DRUGS (3)
  1. ADALAT [Concomitant]
     Dosage: DAILY DOSE 20 MG
     Route: 048
  2. GLIMICRON [Concomitant]
     Dosage: DAILY DOSE 80 MG
     Route: 048
  3. NEXAVAR [Suspect]
     Indication: HEPATIC NEOPLASM MALIGNANT
     Dosage: 800 MG, QD
     Route: 048
     Dates: start: 20090618, end: 20090807

REACTIONS (5)
  - DEPRESSED LEVEL OF CONSCIOUSNESS [None]
  - ASTHENIA [None]
  - HEPATIC NEOPLASM MALIGNANT [None]
  - HEPATIC ENCEPHALOPATHY [None]
  - BRADYKINESIA [None]
